FAERS Safety Report 9311303 (Version 2)
Quarter: 2013Q2

REPORT INFORMATION
  Report Type: Spontaneous
  Country: US (occurrence: US)
  Receive Date: 20130528
  Receipt Date: 20130529
  Transmission Date: 20140414
  Serious: No
  Sender: FDA-Public Use
  Company Number: US-JNJFOC-20130507441

PATIENT
  Sex: Male
  Weight: 50.8 kg

DRUGS (2)
  1. DURAGESIC [Suspect]
     Indication: PAIN
     Route: 062
     Dates: start: 2006, end: 2007
  2. VICODIN [Concomitant]
     Indication: PAIN
     Dosage: 650/10 MG
     Route: 048
     Dates: start: 2000, end: 2013

REACTIONS (2)
  - Wrong technique in drug usage process [Not Recovered/Not Resolved]
  - Drug dose omission [Recovered/Resolved]
